FAERS Safety Report 24810815 (Version 1)
Quarter: 2025Q1

REPORT INFORMATION
  Report Type: Report from Study
  Country: CO (occurrence: CO)
  Receive Date: 20250106
  Receipt Date: 20250106
  Transmission Date: 20250409
  Serious: Yes (Life-Threatening, Other)
  Sender: NOVARTIS
  Company Number: CO-002147023-NVSC2024CO230907

PATIENT
  Age: 81 Year
  Sex: Male
  Weight: 72 kg

DRUGS (5)
  1. ELTROMBOPAG OLAMINE [Suspect]
     Active Substance: ELTROMBOPAG OLAMINE
     Indication: Immune thrombocytopenia
     Dosage: 25 MG, QD
     Route: 048
     Dates: start: 20241107, end: 20241202
  2. INSULIN NOS [Concomitant]
     Active Substance: INSULIN NOS
     Indication: Product used for unknown indication
     Dosage: UNK, QD
     Route: 065
  3. METFORMIN [Concomitant]
     Active Substance: METFORMIN HYDROCHLORIDE
     Indication: Product used for unknown indication
     Route: 065
  4. AMLODIPINE [Concomitant]
     Active Substance: AMLODIPINE BESYLATE
     Indication: Product used for unknown indication
     Route: 065
  5. LOSARTAN [Concomitant]
     Active Substance: LOSARTAN
     Indication: Product used for unknown indication
     Route: 065

REACTIONS (9)
  - Platelet count decreased [Not Recovered/Not Resolved]
  - Platelet count increased [Unknown]
  - Immune thrombocytopenia [Unknown]
  - Disease recurrence [Unknown]
  - Haematochezia [Not Recovered/Not Resolved]
  - Insomnia [Recovered/Resolved]
  - Weight decreased [Unknown]
  - Haematoma [Unknown]
  - Contusion [Not Recovered/Not Resolved]

NARRATIVE: CASE EVENT DATE: 20241201
